FAERS Safety Report 8290361-8 (Version None)
Quarter: 2012Q2

REPORT INFORMATION
  Report Type: 
  Country: None (occurrence: None)
  Receive Date: 20120417
  Receipt Date: 20120404
  Transmission Date: 20120825
  Serious: Yes (Other)
  Sender: FDA-Public Use
  Company Number: FR-ELI_LILLY_AND_COMPANY-FR201203002229

PATIENT
  Age: 56 Year
  Sex: Female
  Weight: 63 kg

DRUGS (6)
  1. CLONAZEPAM [Concomitant]
  2. NORMACOL [Concomitant]
  3. CYMBALTA [Suspect]
     Indication: FIBROMYALGIA
     Dosage: 30 MG, QD
     Dates: start: 20081108
  4. CYMBALTA [Suspect]
     Dosage: UNK, UNKNOWN
     Dates: start: 20100315
  5. EFFERALGAN                         /00020001/ [Concomitant]
  6. CYMBALTA [Suspect]
     Dosage: 60 MG, QD
     Dates: end: 20100119

REACTIONS (1)
  - ATRIAL FIBRILLATION [None]
